FAERS Safety Report 7585880-3 (Version None)
Quarter: 2011Q2

REPORT INFORMATION
  Report Type: 
  Country: None (occurrence: None)
  Receive Date: 20110624
  Receipt Date: 20110616
  Transmission Date: 20111010
  Serious: Yes (Hospitalization)
  Sender: FDA-Public Use
  Company Number: 2011AM004716

PATIENT
  Age: 43 Year
  Sex: Male

DRUGS (2)
  1. HUMALOG [Concomitant]
  2. SYMLIN [Suspect]
     Indication: PRODUCT USED FOR UNKNOWN INDICATION
     Dosage: SC
     Route: 058
     Dates: start: 20110601, end: 20110614

REACTIONS (5)
  - PNEUMONIA [None]
  - BLOOD GLUCOSE INCREASED [None]
  - DYSPNOEA [None]
  - COUGH [None]
  - ASTHENIA [None]
